FAERS Safety Report 13664794 (Version 1)
Quarter: 2017Q2

REPORT INFORMATION
  Report Type: Spontaneous
  Country: JP (occurrence: JP)
  Receive Date: 20170619
  Receipt Date: 20170619
  Transmission Date: 20170830
  Serious: Yes (Other)
  Sender: FDA-Public Use
  Company Number: JP-BRACCO-011273

PATIENT
  Age: 75 Year
  Sex: Male

DRUGS (1)
  1. PROHANCE [Suspect]
     Active Substance: GADOTERIDOL
     Indication: NUCLEAR MAGNETIC RESONANCE IMAGING
     Route: 042
     Dates: start: 20170525, end: 20170525

REACTIONS (4)
  - Blood pressure immeasurable [Unknown]
  - Seizure [Recovered/Resolved]
  - Blood pressure decreased [Unknown]
  - Orthostatic tremor [Recovered/Resolved]

NARRATIVE: CASE EVENT DATE: 20170525
